FAERS Safety Report 4968638-0 (Version None)
Quarter: 2006Q2

REPORT INFORMATION
  Report Type: 
  Country: None (occurrence: None)
  Receive Date: 20060411
  Receipt Date: 20060331
  Transmission Date: 20061013
  Serious: Yes (Death, Life-Threatening, Other)
  Sender: FDA-Public Use
  Company Number: GB-JNJFOC-20050305228

PATIENT
  Sex: Female
  Weight: 84 kg

DRUGS (11)
  1. REMICADE [Suspect]
     Indication: RHEUMATOID ARTHRITIS
     Route: 042
  2. PREDNISOLONE [Concomitant]
     Route: 065
  3. METHOTREXATE [Concomitant]
     Route: 065
  4. FOLIC ACID [Concomitant]
     Route: 065
  5. AMIODIPINE [Concomitant]
     Route: 065
  6. METOPROLOL [Concomitant]
     Route: 065
  7. DICLOFENAC [Concomitant]
     Route: 065
  8. RANITIDINE [Concomitant]
     Route: 065
  9. DIDRONEL [Concomitant]
     Route: 065
  10. PARACETAMOL [Concomitant]
     Route: 065
  11. FERROUS SULFATE TAB [Concomitant]
     Route: 065

REACTIONS (2)
  - FASCIITIS [None]
  - GASTRIC ULCER PERFORATION [None]
